FAERS Safety Report 8246665-8 (Version None)
Quarter: 2012Q1

REPORT INFORMATION
  Report Type: 
  Country: None (occurrence: None)
  Receive Date: 20120314
  Receipt Date: 20120301
  Transmission Date: 20120608
  Serious: Yes (Other)
  Sender: FDA-Public Use
  Company Number: 2012031470

PATIENT
  Age: 54 Year
  Sex: Female

DRUGS (2)
  1. REDIMUNE [Suspect]
     Indication: IMMUNODEFICIENCY COMMON VARIABLE
     Dosage: 12 G QD
     Route: 042
     Dates: start: 20120113
  2. PRIVIGEN [Suspect]
     Indication: IMMUNODEFICIENCY COMMON VARIABLE
     Dosage: 20 G QD
     Route: 042
     Dates: start: 20120120

REACTIONS (4)
  - PRURITUS [None]
  - FIXED ERUPTION [None]
  - RASH [None]
  - NO THERAPEUTIC RESPONSE [None]
